FAERS Safety Report 14684690 (Version 1)
Quarter: 2018Q1

REPORT INFORMATION
  Report Type: Spontaneous
  Country: US (occurrence: US)
  Receive Date: 20180323
  Receipt Date: 20180323
  Transmission Date: 20180509
  Serious: Yes (Hospitalization, Other)
  Sender: FDA-Public Use
  Company Number: None

PATIENT
  Age: 11 Year
  Sex: Male
  Weight: 34.65 kg

DRUGS (4)
  1. SIMILASAN KIDS COLD + MUCUS [Suspect]
     Active Substance: HOMEOPATHICS
     Indication: PULMONARY CONGESTION
     Route: 048
     Dates: start: 20180318, end: 20180319
  2. SIMILASAN KIDS COLD + MUCUS [Suspect]
     Active Substance: HOMEOPATHICS
     Indication: NASOPHARYNGITIS
     Route: 048
     Dates: start: 20180318, end: 20180319
  3. SIMILASAN KIDS COLD + MUCUS [Suspect]
     Active Substance: HOMEOPATHICS
     Indication: PYREXIA
     Route: 048
     Dates: start: 20180318, end: 20180319
  4. ACETAMINAPHEN [Concomitant]

REACTIONS (4)
  - Syncope [None]
  - Vomiting [None]
  - Loss of consciousness [None]
  - Hallucination [None]

NARRATIVE: CASE EVENT DATE: 20180319
